FAERS Safety Report 13026316 (Version 1)
Quarter: 2016Q4

REPORT INFORMATION
  Report Type: Spontaneous
  Country: US (occurrence: US)
  Receive Date: 20161214
  Receipt Date: 20161214
  Transmission Date: 20170207
  Serious: No
  Sender: FDA-Public Use
  Company Number: US-ASTRAZENECA-2016SF28491

PATIENT
  Sex: Female

DRUGS (2)
  1. CRESTOR [Suspect]
     Active Substance: ROSUVASTATIN CALCIUM
     Indication: BLOOD CHOLESTEROL INCREASED
     Route: 048
  2. CRESTOR [Suspect]
     Active Substance: ROSUVASTATIN CALCIUM
     Indication: BLOOD CHOLESTEROL INCREASED
     Dosage: ROSUVASTATIN CALCIUM
     Route: 048

REACTIONS (8)
  - Electrocardiogram abnormal [Unknown]
  - Blood cholesterol increased [Unknown]
  - Myalgia [Unknown]
  - Rash [Unknown]
  - Pruritus [Unknown]
  - Intentional product misuse [Unknown]
  - Arthropathy [Unknown]
  - Restless legs syndrome [Unknown]
